FAERS Safety Report 5600799-2 (Version None)
Quarter: 2008Q1

REPORT INFORMATION
  Report Type: 
  Country: None (occurrence: None)
  Receive Date: 20080123
  Receipt Date: 20080111
  Transmission Date: 20080703
  Serious: Yes (Other)
  Sender: FDA-Public Use
  Company Number: GB-PFIZER INC-2008004201

PATIENT
  Sex: Male
  Weight: 5 kg

DRUGS (6)
  1. SPIRONOLACTONE [Suspect]
  2. ASPIRIN [Interacting]
     Indication: HEART DISEASE CONGENITAL
  3. DIAZOXIDE [Interacting]
     Indication: HYPERINSULINAEMIA
  4. DIAZOXIDE [Interacting]
  5. DIAZOXIDE [Interacting]
  6. FUROSEMIDE [Interacting]
     Indication: HEART DISEASE CONGENITAL

REACTIONS (2)
  - DRUG INTERACTION [None]
  - HYPERGLYCAEMIA [None]
